FAERS Safety Report 6877905-5 (Version None)
Quarter: 2010Q3

REPORT INFORMATION
  Report Type: 
  Country: None (occurrence: None)
  Receive Date: 20100727
  Receipt Date: 20100716
  Transmission Date: 20110219
  Serious: Yes (Hospitalization, Other)
  Sender: FDA-Public Use
  Company Number: PHFR2006GB01802

PATIENT
  Sex: Male
  Weight: 84.353 kg

DRUGS (6)
  1. CLOZARIL [Suspect]
     Indication: SCHIZOPHRENIA
     Dosage: 650MG/DAY
     Route: 048
     Dates: start: 20050110
  2. PENICILLIN NOS [Concomitant]
     Indication: PROPHYLAXIS
     Dosage: 250 MG, BID
     Route: 065
  3. DIHYDROCODEINE BITARTRATE INJ [Concomitant]
     Indication: ANALGESIC THERAPY
     Dosage: 30 MG, BID
     Route: 048
  4. FOLIC ACID [Concomitant]
     Indication: SICKLE CELL ANAEMIA
     Dosage: 5 MG, QD
     Route: 048
  5. DESMOPRESSIN ACETATE [Concomitant]
     Indication: URINARY INCONTINENCE
     Dosage: 400 UG, QD ON
     Route: 048
  6. HYOSCINE HBR HYT [Concomitant]
     Indication: SALIVARY HYPERSECRETION
     Dosage: 300 UG, QD, ON
     Route: 048

REACTIONS (6)
  - DIFFERENTIAL WHITE BLOOD CELL COUNT ABNORMAL [None]
  - EOSINOPHIL COUNT INCREASED [None]
  - HAEMOGLOBIN DECREASED [None]
  - NEUTROPHIL COUNT INCREASED [None]
  - PLATELET COUNT INCREASED [None]
  - WHITE BLOOD CELL COUNT INCREASED [None]
